FAERS Safety Report 6573916-8 (Version None)
Quarter: 2010Q1

REPORT INFORMATION
  Report Type: 
  Country: None (occurrence: None)
  Receive Date: 20100208
  Receipt Date: 20100125
  Transmission Date: 20100710
  Serious: Yes (Congenital Anomaly)
  Sender: FDA-Public Use
  Company Number: IT-MYLANLABS-2010S1001146

PATIENT
  Age: 32 Year
  Sex: Female

DRUGS (1)
  1. ROACCUTANE [Suspect]
     Indication: ACNE
     Dosage: MOTHER'S BODYWEIGHT ~60KG
     Route: 048
     Dates: end: 20080501

REACTIONS (4)
  - ABORTION INDUCED [None]
  - CONJOINED TWINS [None]
  - DRUG EXPOSURE BEFORE PREGNANCY [None]
  - TERATOGENICITY [None]
